FAERS Safety Report 12273581 (Version 2)
Quarter: 2016Q2

REPORT INFORMATION
  Report Type: Report from Study
  Country: SE (occurrence: SE)
  Receive Date: 20160415
  Receipt Date: 20160422
  Transmission Date: 20160815
  Serious: Yes (Life-Threatening, Hospitalization, Disabling)
  Sender: FDA-Public Use
  Company Number: PHHO2016SE005307

PATIENT
  Age: 69 Year
  Sex: Male
  Weight: 100 kg

DRUGS (8)
  1. LBH589 [Suspect]
     Active Substance: PANOBINOSTAT
     Indication: PLASMA CELL MYELOMA
     Dosage: 20 MG, (20 MG DAY 1,3,5,8,10,12)
     Route: 048
     Dates: start: 20160209, end: 20160402
  2. BORTEZOMIB [Suspect]
     Active Substance: BORTEZOMIB
     Indication: PLASMA CELL MYELOMA
     Dosage: 1.3 MG/M2, (1.3 MG/M2 DAY 1,4,8,11)
     Route: 058
     Dates: start: 20160209, end: 20160401
  3. WARFARIN [Concomitant]
     Active Substance: WARFARIN
     Indication: PROPHYLAXIS
     Dosage: SCHEDULE
     Route: 048
     Dates: start: 20130517, end: 20160305
  4. INNOHEP [Concomitant]
     Active Substance: TINZAPARIN SODIUM
     Indication: PROPHYLAXIS
     Dosage: 1400E DAILY
     Route: 058
     Dates: start: 20130408, end: 20130416
  5. ACICLOVIR [Concomitant]
     Active Substance: ACYCLOVIR
     Indication: INFECTION PROPHYLAXIS
     Dosage: 400 MG, BID
     Route: 048
     Dates: start: 20160318
  6. DEXAMETHASONE. [Suspect]
     Active Substance: DEXAMETHASONE
     Indication: PLASMA CELL MYELOMA
     Dosage: 10 MG, (10 MG DAY 1,2,4,5,8,9,10,11)
     Route: 048
     Dates: start: 20160209, end: 20160402
  7. ENALAPRIL [Concomitant]
     Active Substance: ENALAPRIL
     Indication: HYPERTENSION
     Dosage: 10 MG, QD
     Route: 048
     Dates: start: 20150512
  8. PAMIDRONAAT [Concomitant]
     Indication: PROPHYLAXIS
     Dosage: 30 MG (30 MG/10 WEEKS)
     Route: 042
     Dates: start: 20160126

REACTIONS (6)
  - Lung infection [Recovering/Resolving]
  - Diarrhoea [Recovered/Resolved]
  - Neutropenia [Unknown]
  - Syncope [Recovered/Resolved]
  - International normalised ratio increased [Recovered/Resolved]
  - Platelet count decreased [Recovered/Resolved]

NARRATIVE: CASE EVENT DATE: 20160402
